FAERS Safety Report 11465251 (Version 3)
Quarter: 2017Q3

REPORT INFORMATION
  Report Type: Spontaneous
  Country: GB (occurrence: GB)
  Receive Date: 20150907
  Receipt Date: 20170807
  Transmission Date: 20171127
  Serious: Yes (Other)
  Sender: FDA-Public Use
  Company Number: GB-AUROBINDO-AUR-APL-2015-07854

PATIENT

DRUGS (1)
  1. CIPROFLOXACIN. [Suspect]
     Active Substance: CIPROFLOXACIN
     Indication: ORCHITIS
     Dosage: 500 MG, TWO TIMES A DAY
     Route: 048
     Dates: start: 20150430, end: 20150521

REACTIONS (26)
  - Petechiae [Not Recovered/Not Resolved]
  - Joint crepitation [Not Recovered/Not Resolved]
  - Hypoaesthesia [Not Recovered/Not Resolved]
  - Arthralgia [Not Recovered/Not Resolved]
  - Dizziness [Recovering/Resolving]
  - Headache [Recovered/Resolved with Sequelae]
  - Musculoskeletal pain [Not Recovered/Not Resolved]
  - Neuralgia [Not Recovered/Not Resolved]
  - Ear disorder [Recovering/Resolving]
  - Tremor [Recovering/Resolving]
  - Diffuse alopecia [Not Recovered/Not Resolved]
  - Pain in jaw [Not Recovered/Not Resolved]
  - Paraesthesia [Not Recovered/Not Resolved]
  - Diffuse alopecia [Recovered/Resolved]
  - Muscle spasms [Not Recovered/Not Resolved]
  - Tinnitus [Not Recovered/Not Resolved]
  - Muscle twitching [Not Recovered/Not Resolved]
  - Musculoskeletal stiffness [Recovering/Resolving]
  - Raynaud^s phenomenon [Recovered/Resolved with Sequelae]
  - Myalgia [Not Recovered/Not Resolved]
  - Abnormal loss of weight [Recovered/Resolved]
  - Ulnar neuritis [Not Recovered/Not Resolved]
  - Nail ridging [Recovered/Resolved]
  - Neuropathy peripheral [Not Recovered/Not Resolved]
  - Food allergy [Unknown]
  - Rash [Not Recovered/Not Resolved]

NARRATIVE: CASE EVENT DATE: 20150521
